FAERS Safety Report 9046367 (Version 3)
Quarter: 2013Q1

REPORT INFORMATION
  Report Type: Spontaneous
  Country: US (occurrence: US)
  Receive Date: 20130201
  Receipt Date: 20130304
  Transmission Date: 20140127
  Serious: Yes (Hospitalization, Other)
  Sender: FDA-Public Use
  Company Number: PHEH2013US001463

PATIENT
  Age: 64 None
  Sex: Female
  Weight: 80.3 kg

DRUGS (17)
  1. GILENYA [Suspect]
     Indication: MULTIPLE SCLEROSIS
     Dosage: 0.5 MG, QD
     Route: 048
     Dates: start: 20111213
  2. ASPIRIN [Concomitant]
     Dosage: 1 DF, UNK
     Route: 048
  3. ASPIRIN [Concomitant]
     Dosage: 162 UNK, UNK
  4. LIPITOR [Concomitant]
     Dosage: 10 MG, BID
     Route: 048
  5. LIPITOR [Concomitant]
     Dosage: 40 MG, QD
     Route: 048
  6. COREG [Concomitant]
     Dosage: 3.125 MG, BID
     Route: 048
  7. COREG [Concomitant]
     Dosage: 6.25 MG, UNK
     Route: 048
  8. HYDROCODONE W/ACETAMINOPHEN [Concomitant]
     Dosage: UNK UKN, UNK
     Route: 048
  9. KRILL OIL [Concomitant]
     Dosage: 1 DF, QD
  10. LANSOPRAZOLE [Concomitant]
     Dosage: 1 DF, UNK (DELAYED RELEASE CAPSULE ONE IN THE MORNING)
     Route: 048
     Dates: start: 20130104
  11. LISINOPRIL [Concomitant]
     Dosage: 0.5 DF, QD
     Route: 048
     Dates: start: 20130114
  12. PATANOL [Concomitant]
     Dosage: 1 GTT, BID (5ML)
     Route: 047
  13. ZOLOFT [Concomitant]
     Dosage: 1 DF, QD
     Route: 048
     Dates: start: 20130107
  14. TICAGRELOR [Concomitant]
     Dosage: 1 DF, BID
     Route: 048
     Dates: start: 20130113
  15. JANUVIA [Concomitant]
     Dosage: 1 DF, QD
     Route: 048
  16. INSULIN ASPART [Concomitant]
     Dosage: UNK
     Dates: start: 20130114
  17. INSULIN [Concomitant]

REACTIONS (39)
  - Coronary artery occlusion [Unknown]
  - Acute myocardial infarction [Recovering/Resolving]
  - Chest discomfort [Not Recovered/Not Resolved]
  - Chest pain [Unknown]
  - Hyperhidrosis [Unknown]
  - Pallor [Unknown]
  - Fatigue [Unknown]
  - Dizziness [Not Recovered/Not Resolved]
  - Bronchitis viral [Recovering/Resolving]
  - Influenza [Recovering/Resolving]
  - Bacterial infection [Recovering/Resolving]
  - Nausea [Unknown]
  - Electrocardiogram T wave inversion [Unknown]
  - Ventricular extrasystoles [Unknown]
  - Left atrial dilatation [Unknown]
  - Cardiomegaly [Unknown]
  - Scleral discolouration [Unknown]
  - Oral disorder [Unknown]
  - Cold sweat [Unknown]
  - Haemoglobin decreased [Unknown]
  - Haematocrit decreased [Unknown]
  - Blood potassium decreased [Unknown]
  - Blood chloride decreased [Unknown]
  - Blood albumin decreased [Unknown]
  - Calcium ionised increased [Unknown]
  - Protein total decreased [Unknown]
  - Blood creatine phosphokinase increased [Unknown]
  - Troponin I increased [Unknown]
  - Dysphagia [Unknown]
  - Gait disturbance [Unknown]
  - Muscular weakness [Unknown]
  - Lethargy [Unknown]
  - Urinary retention [Unknown]
  - Constipation [Unknown]
  - Vomiting [Unknown]
  - Bradycardia [Unknown]
  - Weight decreased [Unknown]
  - Cough [Unknown]
  - Headache [Unknown]
